FAERS Safety Report 9387785 (Version 2)
Quarter: 2013Q3

REPORT INFORMATION
  Report Type: Spontaneous
  Country: JP (occurrence: None)
  Receive Date: 20130703
  Receipt Date: 20130730
  Transmission Date: 20140515
  Serious: Yes (Hospitalization)
  Sender: FDA-Public Use
  Company Number: TCI2013A03765

PATIENT
  Age: 74 Year
  Sex: Male

DRUGS (5)
  1. ACTOS [Suspect]
     Indication: TYPE 2 DIABETES MELLITUS
     Route: 048
     Dates: start: 20091209
  2. SULFONAMIDES, UREA DERIVATIVES [Concomitant]
  3. DRUG USED IN DIABETES [Concomitant]
  4. CALCIUM CHANNEL BLOCKERS [Concomitant]
  5. ANGIOTENSIN II ANTAGONISTS [Concomitant]

REACTIONS (5)
  - Peripheral revascularisation [None]
  - Gait disturbance [None]
  - Pyrexia [None]
  - Pain [None]
  - Deep vein thrombosis [None]
